FAERS Safety Report 7014275-6 (Version None)
Quarter: 2010Q3

REPORT INFORMATION
  Report Type: 
  Country: None (occurrence: None)
  Receive Date: 20100924
  Receipt Date: 20100924
  Transmission Date: 20110219
  Serious: No
  Sender: FDA-Public Use
  Company Number: None

PATIENT
  Age: 53 Year
  Sex: Female
  Weight: 58.0604 kg

DRUGS (1)
  1. FENTANYL CITRATE [Suspect]
     Dosage: 100MCG ONE Q 72 HRS

REACTIONS (1)
  - ULCER [None]
